FAERS Safety Report 11873140 (Version 1)
Quarter: 2015Q4

REPORT INFORMATION
  Report Type: Report from Study
  Country: BR (occurrence: BR)
  Receive Date: 20151228
  Receipt Date: 20151228
  Transmission Date: 20160305
  Serious: Yes (Death, Hospitalization, Other)
  Sender: FDA-Public Use
  Company Number: BR-ABBVIE-15K-020-1526123-00

PATIENT
  Age: 85 Year
  Sex: Female
  Weight: 49 kg

DRUGS (1)
  1. HUMIRA [Suspect]
     Active Substance: ADALIMUMAB
     Indication: RHEUMATOID ARTHRITIS
     Route: 058
     Dates: start: 20150702, end: 20150813

REACTIONS (4)
  - Lung disorder [Unknown]
  - Respiratory failure [Unknown]
  - Lung neoplasm malignant [Unknown]
  - Respiratory failure [Fatal]

NARRATIVE: CASE EVENT DATE: 2015
